FAERS Safety Report 7058136-5 (Version None)
Quarter: 2010Q4

REPORT INFORMATION
  Report Type: 
  Country: None (occurrence: None)
  Receive Date: 20101022
  Receipt Date: 20101014
  Transmission Date: 20110411
  Serious: Yes (Hospitalization, Other)
  Sender: FDA-Public Use
  Company Number: US-MERCK-0804USA05257

PATIENT
  Age: 81 Year
  Sex: Female

DRUGS (6)
  1. FOSAMAX [Suspect]
     Indication: OSTEOPOROSIS
     Route: 048
     Dates: start: 19970301, end: 20020805
  2. FOSAMAX [Suspect]
     Route: 048
     Dates: start: 20021104, end: 20060401
  3. FOSAMAX [Suspect]
     Route: 048
     Dates: start: 20051001
  4. FOSAMAX [Suspect]
     Route: 048
     Dates: end: 20011001
  5. FOSAMAX [Suspect]
     Route: 048
     Dates: start: 20011001
  6. [THERAPY UNSPECIFIED] [Concomitant]
     Indication: RHEUMATOID ARTHRITIS
     Route: 065
     Dates: start: 20030101

REACTIONS (74)
  - ABDOMINAL DISCOMFORT [None]
  - ABSCESS JAW [None]
  - ADVERSE DRUG REACTION [None]
  - ALOPECIA [None]
  - ATRIAL FIBRILLATION [None]
  - ATRIOVENTRICULAR BLOCK FIRST DEGREE [None]
  - BLOOD HOMOCYSTEINE INCREASED [None]
  - BLOOD POTASSIUM INCREASED [None]
  - BODY TEMPERATURE INCREASED [None]
  - BONE DISORDER [None]
  - CARDIAC FAILURE [None]
  - CATARACT [None]
  - CELLULITIS [None]
  - CEREBROVASCULAR ACCIDENT [None]
  - CHEST PAIN [None]
  - COLON ADENOMA [None]
  - CONTUSION [None]
  - COORDINATION ABNORMAL [None]
  - DENTAL CARIES [None]
  - DIARRHOEA [None]
  - DIARRHOEA HAEMORRHAGIC [None]
  - DIVERTICULITIS [None]
  - DRUG HYPERSENSITIVITY [None]
  - EDENTULOUS [None]
  - EYELID PTOSIS [None]
  - FALL [None]
  - FISTULA DISCHARGE [None]
  - FOLATE DEFICIENCY [None]
  - FUNGAL SKIN INFECTION [None]
  - HAEMATURIA [None]
  - HELICOBACTER GASTRITIS [None]
  - HEPATIC STEATOSIS [None]
  - HIATUS HERNIA [None]
  - HOT FLUSH [None]
  - HYPERTENSION [None]
  - HYPOAESTHESIA ORAL [None]
  - IRON DEFICIENCY ANAEMIA [None]
  - JOINT SWELLING [None]
  - LEFT VENTRICULAR HYPERTROPHY [None]
  - LIMB DISCOMFORT [None]
  - LIVER FUNCTION TEST ABNORMAL [None]
  - LUMBAR RADICULOPATHY [None]
  - METAPLASIA [None]
  - MITRAL VALVE INCOMPETENCE [None]
  - MOUTH HAEMORRHAGE [None]
  - MYELODYSPLASTIC SYNDROME [None]
  - NEUROPATHY PERIPHERAL [None]
  - NOCTURIA [None]
  - OSTEITIS DEFORMANS [None]
  - OSTEOMYELITIS [None]
  - OSTEONECROSIS OF JAW [None]
  - PAIN [None]
  - PERIPHERAL ARTERIAL OCCLUSIVE DISEASE [None]
  - PERIPHERAL VASCULAR DISORDER [None]
  - PERONEAL NERVE PALSY [None]
  - PHLEBITIS [None]
  - PRURITUS [None]
  - PYREXIA [None]
  - RED BLOOD CELL SEDIMENTATION RATE INCREASED [None]
  - RENAL FAILURE [None]
  - RHEUMATOID ARTHRITIS [None]
  - RIGHT ATRIAL DILATATION [None]
  - SCOLIOSIS [None]
  - SKIN DISORDER [None]
  - SPINAL FRACTURE [None]
  - TEMPOROMANDIBULAR JOINT SYNDROME [None]
  - TOOTH ABSCESS [None]
  - TRANSIENT ISCHAEMIC ATTACK [None]
  - URINARY TRACT INFECTION [None]
  - UROSEPSIS [None]
  - VENOUS INSUFFICIENCY [None]
  - VITAMIN B12 DEFICIENCY [None]
  - WALKING AID USER [None]
  - WEIGHT DECREASED [None]
